FAERS Safety Report 14223944 (Version 1)
Quarter: 2017Q4

REPORT INFORMATION
  Report Type: Spontaneous
  Country: US (occurrence: None)
  Receive Date: 20171122
  Receipt Date: 20171122
  Transmission Date: 20180321
  Serious: Yes (Hospitalization)
  Sender: FDA-Public Use
  Company Number: None

PATIENT
  Age: 52 Year
  Sex: Female
  Weight: 84.8 kg

DRUGS (10)
  1. LISINOPRIL. [Concomitant]
     Active Substance: LISINOPRIL
  2. BISCADOLY [Concomitant]
  3. ATORVASTIN [Concomitant]
     Active Substance: ATORVASTATIN
  4. CELEXA [Concomitant]
     Active Substance: CITALOPRAM HYDROBROMIDE
  5. AMLODIPINE [Concomitant]
     Active Substance: AMLODIPINE BESYLATE
  6. NORCO [Concomitant]
     Active Substance: ACETAMINOPHEN\HYDROCODONE BITARTRATE
  7. NUVIGIL [Suspect]
     Active Substance: ARMODAFINIL
     Dates: end: 20171114
  8. BACLOFEN. [Concomitant]
     Active Substance: BACLOFEN
  9. KEPPRA [Concomitant]
     Active Substance: LEVETIRACETAM
  10. ZYRTEC [Concomitant]
     Active Substance: CETIRIZINE HYDROCHLORIDE

REACTIONS (5)
  - Brain midline shift [None]
  - Neck pain [None]
  - Brain oedema [None]
  - Headache [None]
  - Fall [None]

NARRATIVE: CASE EVENT DATE: 20171114
